FAERS Safety Report 7701189-9 (Version None)
Quarter: 2011Q3

REPORT INFORMATION
  Report Type: 
  Country: None (occurrence: None)
  Receive Date: 20110822
  Receipt Date: 20110804
  Transmission Date: 20111222
  Serious: Yes (Congenital Anomaly)
  Sender: FDA-Public Use
  Company Number: US-GLAXOSMITHKLINE-A0851710A

PATIENT
  Sex: Male

DRUGS (1)
  1. PAXIL [Suspect]
     Indication: DEPRESSION
     Route: 064
     Dates: start: 19980101

REACTIONS (4)
  - PERSISTENT FOETAL CIRCULATION [None]
  - LUNG DISORDER [None]
  - RESPIRATORY SYNCYTIAL VIRUS INFECTION [None]
  - MATERNAL EXPOSURE DURING PREGNANCY [None]
